FAERS Safety Report 6142804-3 (Version None)
Quarter: 2009Q2

REPORT INFORMATION
  Report Type: 
  Country: None (occurrence: None)
  Receive Date: 20090403
  Receipt Date: 20090402
  Transmission Date: 20091009
  Serious: No
  Sender: FDA-Public Use
  Company Number: US-B.I. PHARMACEUTICALS,INC./RIDGEFIELD-2009-BP-02379BP

PATIENT
  Age: 79 Year
  Sex: Male

DRUGS (9)
  1. SPIRIVA [Suspect]
     Indication: EMPHYSEMA
     Dosage: 18MCG
     Route: 055
     Dates: start: 20081212
  2. LISINOPRIL [Suspect]
     Indication: BLOOD PRESSURE
  3. VENTOLIN [Concomitant]
     Indication: EMPHYSEMA
  4. ALENDRONATE SODIUM [Concomitant]
     Indication: OSTEOPOROSIS PROPHYLAXIS
  5. AMLIODIPINE [Concomitant]
     Indication: BLOOD PRESSURE
  6. PLAVIX [Concomitant]
     Indication: AORTIC VALVE INCOMPETENCE
  7. HYDROCHLOROTHIAZIDE [Concomitant]
     Indication: BLOOD PRESSURE
  8. CRESTOR [Concomitant]
     Indication: BLOOD CHOLESTEROL INCREASED
  9. SERTRALINE HCL [Concomitant]
     Indication: DEPRESSION

REACTIONS (1)
  - COUGH [None]
